FAERS Safety Report 4581851-X (Version None)
Quarter: 2005Q1

REPORT INFORMATION
  Report Type: 
  Country: None (occurrence: None)
  Receive Date: 20050214
  Receipt Date: 20040319
  Transmission Date: 20050727
  Serious: Yes (Hospitalization)
  Sender: FDA-Public Use
  Company Number: US-GLAXOSMITHKLINE-A0503521A

PATIENT
  Sex: Male

DRUGS (3)
  1. LAMICTAL [Suspect]
     Indication: BIPOLAR DISORDER
     Dosage: 25MG PER DAY
     Route: 048
     Dates: start: 20031101
  2. ABILIFY [Concomitant]
     Dates: start: 20031101
  3. TRAZODONE [Concomitant]
     Dosage: 100MG PER DAY
     Dates: start: 20031101

REACTIONS (4)
  - ANXIETY [None]
  - INSOMNIA [None]
  - MANIA [None]
  - NAUSEA [None]
